FAERS Safety Report 13508849 (Version 7)
Quarter: 2017Q4

REPORT INFORMATION
  Report Type: Report from Study
  Country: BE (occurrence: BE)
  Receive Date: 20170503
  Receipt Date: 20171019
  Transmission Date: 20180320
  Serious: Yes (Other)
  Sender: FDA-Public Use
  Company Number: BE-BAYER-2016-164753

PATIENT
  Sex: Male

DRUGS (6)
  1. NEXAVAR [Suspect]
     Active Substance: SORAFENIB
     Indication: HEPATOCELLULAR CARCINOMA
     Dosage: DAILY DOSE 600 MG
  2. DAFALGAN [Concomitant]
     Active Substance: ACETAMINOPHEN
     Indication: PAIN
     Dosage: UNK
  3. NEXAVAR [Suspect]
     Active Substance: SORAFENIB
     Indication: HEPATOCELLULAR CARCINOMA
     Dosage: DAILY DOSE 600 MG
     Dates: start: 20150504, end: 20161111
  4. OXYNORM [Concomitant]
     Active Substance: OXYCODONE HYDROCHLORIDE
     Indication: PAIN
     Dosage: 10 MG, PRN
     Dates: start: 20161115
  5. NEXAVAR [Suspect]
     Active Substance: SORAFENIB
     Indication: METASTASES TO SPINE
     Dosage: DAILY DOSE 800 MG
     Dates: start: 20161124
  6. MOVICOL [Concomitant]
     Active Substance: POLYETHYLENE GLYCOL 3350\POTASSIUM CHLORIDE\SODIUM BICARBONATE\SODIUM CHLORIDE
     Dosage: UNK (SACHET PER DAY)

REACTIONS (43)
  - Metastases to spine [Unknown]
  - Anal haemorrhage [Recovered/Resolved]
  - Tachycardia [None]
  - Heart rate irregular [None]
  - Tachycardia [None]
  - Gastrointestinal motility disorder [Not Recovered/Not Resolved]
  - Hypertension [None]
  - Constipation [Not Recovered/Not Resolved]
  - Pain in extremity [None]
  - Constipation [None]
  - Decreased appetite [Not Recovered/Not Resolved]
  - Bladder discomfort [None]
  - Metastases to bone [None]
  - Tachyarrhythmia [Unknown]
  - Fatigue [None]
  - Weight decreased [None]
  - Cough [None]
  - Heart rate irregular [None]
  - Decreased appetite [None]
  - Arthralgia [None]
  - Neuralgia [Not Recovered/Not Resolved]
  - Decreased appetite [None]
  - Constipation [None]
  - Diarrhoea [None]
  - Pollakiuria [None]
  - Subcutaneous haematoma [Recovering/Resolving]
  - Diarrhoea [Not Recovered/Not Resolved]
  - Coccydynia [None]
  - Musculoskeletal pain [Not Recovered/Not Resolved]
  - Inflammation [Recovering/Resolving]
  - Musculoskeletal pain [Not Recovered/Not Resolved]
  - Weight decreased [None]
  - Restlessness [Not Recovered/Not Resolved]
  - Metastases to spine [Not Recovered/Not Resolved]
  - Palmar-plantar erythrodysaesthesia syndrome [None]
  - Dysgeusia [Not Recovered/Not Resolved]
  - Bronchitis [None]
  - Gastrointestinal disorder [None]
  - Pain in extremity [Not Recovered/Not Resolved]
  - Subcutaneous abscess [Recovering/Resolving]
  - Metastases to bone [Unknown]
  - Defaecation urgency [None]
  - Fatigue [None]

NARRATIVE: CASE EVENT DATE: 20160425
